FAERS Safety Report 10137616 (Version 2)
Quarter: 2014Q2

REPORT INFORMATION
  Report Type: Spontaneous
  Country: IT (occurrence: IT)
  Receive Date: 20140429
  Receipt Date: 20140611
  Transmission Date: 20141212
  Serious: Yes (Death)
  Sender: FDA-Public Use
  Company Number: IT-SA-2014SA049452

PATIENT
  Age: 66 Year
  Sex: Male

DRUGS (14)
  1. JEVTANA [Suspect]
     Indication: PROSTATE CANCER
     Route: 042
     Dates: start: 20140115, end: 20140226
  2. ZOMETA [Suspect]
     Indication: PRODUCT USED FOR UNKNOWN INDICATION
     Route: 042
     Dates: start: 20140109, end: 20140205
  3. OMEPRAZEN [Concomitant]
  4. TENORMIN [Concomitant]
  5. TARGIN [Concomitant]
  6. DELTACORTENE [Concomitant]
  7. CO-EFFERALGAN [Concomitant]
  8. LYRICA [Concomitant]
     Route: 048
  9. TRANSTEC [Concomitant]
     Dosage: 1 SIS EVERY 72 HOURS
  10. CLEXANE T [Concomitant]
     Dosage: SOLUTION FOR INJECTION
     Route: 058
  11. ENANTONE [Concomitant]
     Dosage: POWDER AND SOLVENT FOR SUSPENSION INJECTION?DOSE^ 1 VIAL EVERY 3 MONTHS
  12. ABSTRAL [Concomitant]
  13. DIBASE [Concomitant]
  14. CALCIUM CARBONATE [Concomitant]

REACTIONS (1)
  - Sudden death [Fatal]
